FAERS Safety Report 7878800-5 (Version None)
Quarter: 2011Q4

REPORT INFORMATION
  Report Type: 
  Country: None (occurrence: None)
  Receive Date: 20111021
  Receipt Date: 20110825
  Transmission Date: 20120403
  Serious: No
  Sender: FDA-Public Use
  Company Number: US-006148

PATIENT
  Sex: Male

DRUGS (2)
  1. DEGARELIX (240 MG, 80 MG) [Suspect]
     Indication: PROSTATE CANCER
     Dosage: (240 MG 1X SUBCUTANEOUS) ; (80 MG 1X/MONTH, 80 MG EVERY 28 DAYS SUBCUTANEOUS)
     Route: 058
     Dates: start: 20110701, end: 20110701
  2. DEGARELIX (240 MG, 80 MG) [Suspect]
     Indication: PROSTATE CANCER
     Dosage: (240 MG 1X SUBCUTANEOUS) ; (80 MG 1X/MONTH, 80 MG EVERY 28 DAYS SUBCUTANEOUS)
     Route: 058
     Dates: start: 20110825

REACTIONS (1)
  - ATRIAL FIBRILLATION [None]
